FAERS Safety Report 9474711 (Version 2)
Quarter: 2013Q3

REPORT INFORMATION
  Report Type: Spontaneous
  Country: PT (occurrence: PT)
  Receive Date: 20130823
  Receipt Date: 20130919
  Transmission Date: 20140515
  Serious: Yes (Other)
  Sender: FDA-Public Use
  Company Number: PT-ACTAVIS-2013-15026

PATIENT
  Age: 52 Year
  Sex: Male

DRUGS (1)
  1. DOCETAXEL ACTAVIS [Suspect]
     Indication: LUNG NEOPLASM MALIGNANT
     Dosage: 120 MG, ONCE EVERY 21 DAYS
     Route: 042
     Dates: start: 20130520, end: 20130731

REACTIONS (4)
  - Hypertension [Recovered/Resolved]
  - Erythema [Recovered/Resolved]
  - Malaise [Recovered/Resolved]
  - Oxygen saturation decreased [Recovered/Resolved]
